FAERS Safety Report 16830930 (Version 1)
Quarter: 2019Q3

REPORT INFORMATION
  Report Type: Spontaneous
  Country: DE (occurrence: DE)
  Receive Date: 20190920
  Receipt Date: 20190920
  Transmission Date: 20191005
  Serious: Yes (Death, Hospitalization, Disabling)
  Sender: FDA-Public Use
  Company Number: DE-MALLINCKRODT-T201805322

PATIENT
  Age: 68 Year
  Sex: Male
  Weight: 75 kg

DRUGS (17)
  1. EXALGO [Suspect]
     Active Substance: HYDROMORPHONE HYDROCHLORIDE
     Indication: ANALGESIC THERAPY
     Dosage: UNK
     Route: 065
     Dates: start: 20181001
  2. ABRAXANE [Suspect]
     Active Substance: PACLITAXEL
     Indication: NON-SMALL CELL LUNG CANCER
     Dosage: 225 MG/M2, QD
     Route: 041
     Dates: start: 20180911, end: 20180911
  3. TIOTROPIUM BROMIDE [Concomitant]
     Active Substance: TIOTROPIUM BROMIDE
     Indication: PROPHYLAXIS
     Dosage: 2.5 MG, IN 1 DAY
     Route: 048
     Dates: start: 20180810
  4. ALOXI [Concomitant]
     Active Substance: PALONOSETRON HYDROCHLORIDE
     Indication: PROPHYLAXIS
     Dosage: 250 MG, UNK
     Route: 041
     Dates: start: 20181002
  5. ROXITHROMYCIN [Concomitant]
     Active Substance: ROXITHROMYCIN
     Indication: CHEST PAIN
     Dosage: 300 MG, IN 1 DAY
     Route: 048
     Dates: start: 20180907, end: 20180913
  6. NOVAMINSULFON [Concomitant]
     Active Substance: METAMIZOLE
     Indication: CHEST PAIN
     Dosage: 500 MG, UNK
     Route: 048
     Dates: start: 20180905
  7. DEXAMETHASONE. [Concomitant]
     Active Substance: DEXAMETHASONE
     Dosage: 8 MG, 1 DAY
     Route: 042
     Dates: start: 20181002
  8. CIPRAMIL [Concomitant]
     Indication: DEPRESSION
     Dosage: 30 MG  IN 1 DAY
     Route: 048
     Dates: start: 20180713
  9. NALOXONE HYDROCHLORIDE. [Concomitant]
     Active Substance: NALOXONE HYDROCHLORIDE
     Indication: PRODUCT USED FOR UNKNOWN INDICATION
     Dosage: UNK
     Route: 065
  10. CARBOPLATIN. [Suspect]
     Active Substance: CARBOPLATIN
     Indication: NON-SMALL CELL LUNG CANCER
     Dosage: 6 MG/MIN/ML
     Route: 041
     Dates: start: 20180911, end: 20181030
  11. BUDESONID [Concomitant]
     Active Substance: BUDESONIDE
     Indication: CHEST PAIN
     Dosage: 3 MG, 1 DAY
     Route: 048
     Dates: start: 20180713
  12. LOPERAMID [Concomitant]
     Active Substance: LOPERAMIDE
     Indication: PROPHYLAXIS
     Dosage: UNK
     Route: 048
     Dates: start: 20180907
  13. IVEMEND [Concomitant]
     Active Substance: FOSAPREPITANT DIMEGLUMINE
     Indication: PROPHYLAXIS
     Dosage: 150 MG, UNK
     Route: 041
     Dates: start: 20181002
  14. DEXAMETHASONE. [Concomitant]
     Active Substance: DEXAMETHASONE
     Indication: PROPHYLAXIS
     Dosage: 8 MG, 1 DAY
     Route: 048
     Dates: start: 20181002
  15. BISOPROLOL [Concomitant]
     Active Substance: BISOPROLOL
     Indication: HYPERTENSION
     Dosage: 5 MG, 1 DAY
     Route: 048
     Dates: start: 20180713
  16. ABRAXANE [Suspect]
     Active Substance: PACLITAXEL
     Dosage: 100 MG/M2, QD
     Route: 041
     Dates: start: 20181002, end: 20181106
  17. BERLOSIN [Concomitant]
     Active Substance: METAMIZOLE
     Indication: PROPHYLAXIS
     Dosage: 500 MG, IN 1 DAY
     Route: 048
     Dates: start: 20180912

REACTIONS (7)
  - Sleep disorder [Unknown]
  - Vomiting [Recovered/Resolved]
  - Nausea [Not Recovered/Not Resolved]
  - Decreased appetite [Not Recovered/Not Resolved]
  - Death [Fatal]
  - Dyspnoea [Not Recovered/Not Resolved]
  - Fatigue [Not Recovered/Not Resolved]

NARRATIVE: CASE EVENT DATE: 20181001
